FAERS Safety Report 10776790 (Version 3)
Quarter: 2015Q1

REPORT INFORMATION
  Report Type: Report from Study
  Country: FR (occurrence: FR)
  Receive Date: 20150209
  Receipt Date: 20150302
  Transmission Date: 20150721
  Serious: Yes (Death, Life-Threatening, Hospitalization, Other)
  Sender: FDA-Public Use
  Company Number: US-ASTRAZENECA-2015SE10120

PATIENT
  Age: 208 Day
  Sex: Female

DRUGS (1)
  1. SYNAGIS [Suspect]
     Active Substance: PALIVIZUMAB
     Indication: ANTIVIRAL PROPHYLAXIS
     Route: 030
     Dates: start: 20141002, end: 20150115

REACTIONS (5)
  - Cyanosis [Not Recovered/Not Resolved]
  - Cardiac arrest [Fatal]
  - Brain death [Fatal]
  - Malaise [Not Recovered/Not Resolved]
  - Respiratory arrest [Fatal]

NARRATIVE: CASE EVENT DATE: 20150123
